FAERS Safety Report 4751695-4 (Version None)
Quarter: 2005Q3

REPORT INFORMATION
  Report Type: 
  Country: None (occurrence: None)
  Receive Date: 20050823
  Receipt Date: 20050823
  Transmission Date: 20060218
  Serious: Yes (Life-Threatening, Hospitalization)
  Sender: FDA-Public Use
  Company Number: None

PATIENT
  Age: 81 Year
  Sex: Female
  Weight: 75.2 kg

DRUGS (3)
  1. ALENDRONATE [Suspect]
     Indication: OSTEOPOROSIS PROPHYLAXIS
     Dosage: 35 MG P.O. WEEKLY
     Route: 048
     Dates: start: 20050509, end: 20050722
  2. CALCITONIN-SALMON [Concomitant]
  3. CALCIUM/VITAMIN D [Concomitant]

REACTIONS (1)
  - GASTRIC ULCER [None]
